FAERS Safety Report 5804875-0 (Version None)
Quarter: 2008Q3

REPORT INFORMATION
  Report Type: 
  Country: None (occurrence: None)
  Receive Date: 20080709
  Receipt Date: 20080627
  Transmission Date: 20090109
  Serious: Yes (Hospitalization)
  Sender: FDA-Public Use
  Company Number: GB-PFIZER INC-2006079479

PATIENT
  Sex: Male
  Weight: 101 kg

DRUGS (19)
  1. SU-011,248 [Suspect]
     Indication: RENAL CELL CARCINOMA
     Route: 048
  2. AMLODIPINE [Concomitant]
     Dosage: TEXT:UNKNOWN-FREQ:UNKNOWN
     Route: 048
  3. LISINOPRIL [Concomitant]
     Dosage: DAILY DOSE:10MG-FREQ:DAILY
     Route: 048
     Dates: start: 20040101
  4. GABAPENTIN [Concomitant]
     Dosage: DAILY DOSE:400MG
     Route: 048
     Dates: start: 20040101
  5. VALPROIC ACID [Concomitant]
     Dosage: DAILY DOSE:300MG
     Route: 048
     Dates: start: 19980101
  6. AMITRIPTYLINE HCL [Concomitant]
     Dosage: DAILY DOSE:25MG
     Route: 048
     Dates: start: 20040101
  7. HYDROCORTISONE [Concomitant]
     Dosage: DAILY DOSE:10MG
     Route: 048
     Dates: start: 19960101
  8. FLUDROCORTISONE ACETATE [Concomitant]
     Dosage: DAILY DOSE:100MCG
     Route: 048
     Dates: start: 19960101
  9. TRAMADOL HCL [Concomitant]
     Dosage: TEXT:UNKNOWN-FREQ:UNKNOWN
     Route: 048
     Dates: start: 20010101
  10. COD-LIVER OIL [Concomitant]
     Dosage: TEXT:UNKNOWN-FREQ:UNKNOWN
     Route: 048
     Dates: start: 20040101
  11. MULTI-VITAMINS [Concomitant]
     Dosage: TEXT:UNKNOWN-FREQ:UNKNOWN
     Route: 048
     Dates: start: 20040101
  12. IRON [Concomitant]
     Dosage: TEXT:UNKNOWN-FREQ:UNKNOWN
     Route: 048
     Dates: start: 20040101
  13. DIPROBASE CREAM [Concomitant]
     Dosage: TEXT:UNKNOWN-FREQ:UNKNOWN
     Route: 061
     Dates: start: 20040401
  14. LANSOPRAZOLE [Concomitant]
     Route: 048
  15. ATENOLOL [Concomitant]
  16. CLOPIDOGREL [Concomitant]
  17. ACETAMINOPHEN [Concomitant]
     Dosage: DAILY DOSE:1GRAM
     Route: 048
  18. CALCIUM PHOSPHATE W/COLECALCIFEROL [Concomitant]
  19. SANDO K [Concomitant]

REACTIONS (2)
  - CHEST PAIN [None]
  - PNEUMONIA [None]
